FAERS Safety Report 16790879 (Version 1)
Quarter: 2019Q4

REPORT INFORMATION
  Report Type: Spontaneous
  Country: US (occurrence: US)
  Receive Date: 20190909
  Receipt Date: 20190909
  Transmission Date: 20200122
  Serious: No
  Sender: FDA-Public Use
  Company Number: None

PATIENT
  Age: 84 Year
  Sex: Female

DRUGS (3)
  1. CEFTAZIDIME. [Concomitant]
     Active Substance: CEFTAZIDIME
     Dates: start: 20190729, end: 20190729
  2. BEVACIZUMAB. [Suspect]
     Active Substance: BEVACIZUMAB
     Dosage: 2.5 MG ONCE INTRAVITREAL
  3. VANCOMYCIN [Concomitant]
     Active Substance: VANCOMYCIN
     Dates: start: 20190729, end: 20190729

REACTIONS (3)
  - Eye pain [None]
  - Eye inflammation [None]
  - Visual acuity reduced [None]

NARRATIVE: CASE EVENT DATE: 20190729
